FAERS Safety Report 5054597-1 (Version None)
Quarter: 2006Q2

REPORT INFORMATION
  Report Type: 
  Country: None (occurrence: None)
  Receive Date: 20060616
  Receipt Date: 20060502
  Transmission Date: 20061013
  Serious: No
  Sender: FDA-Public Use
  Company Number: 2006US000532

PATIENT
  Age: 51 Year
  Sex: Female

DRUGS (10)
  1. VESICARE [Suspect]
     Indication: BLADDER DISORDER
     Dosage: SEE IMAGE
     Route: 048
  2. INSULONG (INSULIN ZINC SUSPENSION) [Concomitant]
  3. METFORMIN (METFORMIN) [Concomitant]
  4. SYNTHROID [Concomitant]
  5. EFFEXOR [Concomitant]
  6. DEPAKOTE [Concomitant]
  7. ALPHODOLFALEUS [Concomitant]
  8. MUSHROOM MEDICATION [Concomitant]
  9. ADVAIR DISKUS 100/50 [Concomitant]
  10. DETROL LA [Concomitant]

REACTIONS (1)
  - OEDEMA PERIPHERAL [None]
